FAERS Safety Report 5164160-X (Version None)
Quarter: 2006Q4

REPORT INFORMATION
  Report Type: 
  Country: None (occurrence: None)
  Receive Date: 20061204
  Receipt Date: 20061122
  Transmission Date: 20070319
  Serious: Yes (Other)
  Sender: FDA-Public Use
  Company Number: US-JNJFOC-20061001482

PATIENT
  Sex: Female
  Weight: 125.19 kg

DRUGS (6)
  1. REMICADE [Suspect]
     Route: 042
  2. REMICADE [Suspect]
     Route: 042
  3. REMICADE [Suspect]
     Indication: RHEUMATOID ARTHRITIS
     Dosage: 3 MG/KG, 1 EVERY 12 WEEKS, INITIATED PRIOR TO 16-FEB-2006
     Route: 042
  4. ETODOLAC [Concomitant]
  5. METHOTREXATE [Concomitant]
  6. NEXIUM [Concomitant]
     Indication: GASTROOESOPHAGEAL REFLUX DISEASE

REACTIONS (2)
  - ARTHRITIS [None]
  - ENDOMETRIAL CANCER [None]
